FAERS Safety Report 10266608 (Version 3)
Quarter: 2014Q3

REPORT INFORMATION
  Report Type: Spontaneous
  Country: JP (occurrence: JP)
  Receive Date: 20140629
  Receipt Date: 20140717
  Transmission Date: 20150326
  Serious: Yes (Other)
  Sender: FDA-Public Use
  Company Number: PHHY2014JP074351

PATIENT
  Sex: Female

DRUGS (1)
  1. LAMISIL [Suspect]
     Active Substance: TERBINAFINE HYDROCHLORIDE
     Dosage: 125 MG, DAILY
     Route: 048
     Dates: start: 20140610, end: 20140612

REACTIONS (4)
  - Uterine haemorrhage [Recovered/Resolved]
  - Menstrual disorder [Recovered/Resolved]
  - Uterine leiomyoma [Unknown]
  - Hormone level abnormal [Unknown]

NARRATIVE: CASE EVENT DATE: 20140612
